FAERS Safety Report 17478401 (Version 1)
Quarter: 2020Q1

REPORT INFORMATION
  Report Type: Report from Study
  Country: GB (occurrence: GB)
  Receive Date: 20200228
  Receipt Date: 20200228
  Transmission Date: 20200409
  Serious: Yes (Other)
  Sender: FDA-Public Use
  Company Number: GB-JNJFOC-20191125845

PATIENT
  Sex: Female

DRUGS (4)
  1. METHOTREXATE. [Concomitant]
     Active Substance: METHOTREXATE
  2. PREGABALIN. [Concomitant]
     Active Substance: PREGABALIN
  3. STELARA [Suspect]
     Active Substance: USTEKINUMAB
     Indication: PSORIASIS
     Dosage: 45MG/0.5ML
     Route: 058
     Dates: start: 2004
  4. MORPHINE [Concomitant]
     Active Substance: MORPHINE

REACTIONS (1)
  - Cellulitis [Unknown]
